FAERS Safety Report 16032454 (Version 2)
Quarter: 2019Q1

REPORT INFORMATION
  Report Type: Report from Study
  Country: CA (occurrence: CA)
  Receive Date: 20190304
  Receipt Date: 20190306
  Transmission Date: 20190418
  Serious: Yes (Other)
  Sender: FDA-Public Use
  Company Number: CA-HLSUS-2019-CA-000196

PATIENT
  Sex: Male

DRUGS (3)
  1. LUVOX [Concomitant]
     Active Substance: FLUVOXAMINE MALEATE
     Dosage: 50 MG DAILY
  2. CLOZARIL [Suspect]
     Active Substance: CLOZAPINE
     Dosage: 100 MG DAILY
     Route: 048
     Dates: start: 20181214
  3. FLORONEF [Concomitant]
     Dosage: 0.1 MG DAILY

REACTIONS (2)
  - Tachycardia [Unknown]
  - Cardiovascular disorder [Unknown]
